FAERS Safety Report 6756719-0 (Version None)
Quarter: 2010Q2

REPORT INFORMATION
  Report Type: 
  Country: None (occurrence: None)
  Receive Date: 20100603
  Receipt Date: 20100603
  Transmission Date: 20101027
  Serious: No
  Sender: FDA-Public Use
  Company Number: None

PATIENT
  Age: 66 Year
  Sex: Male
  Weight: 82.5547 kg

DRUGS (2)
  1. COZAAR [Suspect]
     Indication: MALAISE
     Dates: start: 20100522, end: 20100524
  2. LOSARTAN POTASSIUM [Suspect]

REACTIONS (5)
  - DIARRHOEA [None]
  - HEART RATE IRREGULAR [None]
  - PRODUCT FORMULATION ISSUE [None]
  - PRODUCT ODOUR ABNORMAL [None]
  - PRODUCT SUBSTITUTION ISSUE [None]
